FAERS Safety Report 4305618-2 (Version None)
Quarter: 2004Q1

REPORT INFORMATION
  Report Type: 
  Country: None (occurrence: None)
  Receive Date: 20040226
  Receipt Date: 20031215
  Transmission Date: 20041129
  Serious: No
  Sender: FDA-Public Use
  Company Number: US-BRISTOL-MYERS SQUIBB COMPANY-12457925

PATIENT
  Age: 8 Year
  Sex: Male
  Weight: 23 kg

DRUGS (1)
  1. ABILIFY [Suspect]
     Indication: PERVASIVE DEVELOPMENTAL DISORDER
     Dosage: INITIAL DOSE: 2.5 MG/DAY FOR APPROX 1 WEEK
     Route: 048
     Dates: end: 20031214

REACTIONS (3)
  - DYSKINESIA [None]
  - MUSCLE TWITCHING [None]
  - MUSCULOSKELETAL STIFFNESS [None]
